FAERS Safety Report 16945253 (Version 1)
Quarter: 2019Q4

REPORT INFORMATION
  Report Type: Spontaneous
  Country: US (occurrence: US)
  Receive Date: 20191021
  Receipt Date: 20191021
  Transmission Date: 20200122
  Serious: No
  Sender: FDA-Public Use
  Company Number: None

PATIENT
  Age: 51 Year
  Sex: Female
  Weight: 65.25 kg

DRUGS (3)
  1. EXCEDRIN [Concomitant]
     Active Substance: ACETAMINOPHEN\ASPIRIN\CAFFEINE
  2. AIMOVIG [Suspect]
     Active Substance: ERENUMAB-AOOE
     Indication: MIGRAINE
     Dosage: ?          QUANTITY:1 INJECTION(S);OTHER FREQUENCY:ONCE A MONTH;?
     Route: 058
     Dates: end: 20191001
  3. IMITREX [Concomitant]
     Active Substance: SUMATRIPTAN SUCCINATE

REACTIONS (5)
  - Oropharyngeal pain [None]
  - Sneezing [None]
  - Nasopharyngitis [None]
  - Middle insomnia [None]
  - Dyspnoea [None]

NARRATIVE: CASE EVENT DATE: 20190705
